FAERS Safety Report 7030825-8 (Version None)
Quarter: 2010Q4

REPORT INFORMATION
  Report Type: 
  Country: None (occurrence: None)
  Receive Date: 20101006
  Receipt Date: 20101001
  Transmission Date: 20110411
  Serious: No
  Sender: FDA-Public Use
  Company Number: US-PFIZER INC-2010124921

PATIENT
  Age: 77 Year
  Sex: Male

DRUGS (1)
  1. NORPACE [Suspect]
     Dosage: 100 MG, 2X/DAY

REACTIONS (1)
  - SOMNOLENCE [None]
